FAERS Safety Report 7118485-9 (Version None)
Quarter: 2010Q4

REPORT INFORMATION
  Report Type: 
  Country: None (occurrence: None)
  Receive Date: 20101123
  Receipt Date: 20101115
  Transmission Date: 20110411
  Serious: Yes (Other)
  Sender: FDA-Public Use
  Company Number: ES-SANOFI-AVENTIS-2010SA069392

PATIENT
  Age: 54 Year
  Sex: Male

DRUGS (7)
  1. CLEXANE SYRINGES [Suspect]
     Indication: PROPHYLAXIS
     Route: 058
     Dates: start: 20101013
  2. IMIPENEM [Suspect]
     Indication: URINARY TRACT INFECTION
     Route: 042
     Dates: start: 20100912, end: 20101001
  3. CILASTATIN [Suspect]
     Indication: URINARY TRACT INFECTION
     Route: 042
     Dates: start: 20100912, end: 20101001
  4. ENANTYUM [Suspect]
     Indication: PAIN
     Route: 042
     Dates: start: 20100912, end: 20101001
  5. PERFALGAN [Suspect]
     Indication: PAIN
     Route: 042
     Dates: start: 20100912, end: 20101001
  6. DIFLUCAN [Suspect]
     Indication: FUNGAL INFECTION
     Route: 042
     Dates: start: 20100913, end: 20100916
  7. AMPICILLIN [Suspect]
     Indication: URINARY TRACT INFECTION
     Route: 042
     Dates: start: 20100913, end: 20101001

REACTIONS (1)
  - HEPATITIS [None]
